FAERS Safety Report 8398200-1 (Version None)
Quarter: 2012Q2

REPORT INFORMATION
  Report Type: 
  Country: None (occurrence: None)
  Receive Date: 20120531
  Receipt Date: 20120529
  Transmission Date: 20120825
  Serious: Yes (Other)
  Sender: FDA-Public Use
  Company Number: PHHY2012BE045465

PATIENT

DRUGS (1)
  1. BRIMONIDINE TARTRATE [Suspect]
     Dosage: 1 GTT, UNK

REACTIONS (4)
  - SEDATION [None]
  - ACCIDENTAL EXPOSURE [None]
  - HYPERGLYCAEMIA [None]
  - CARDIO-RESPIRATORY DISTRESS [None]
